FAERS Safety Report 9171746 (Version 1)
Quarter: 2013Q1

REPORT INFORMATION
  Report Type: Spontaneous
  Country: US (occurrence: US)
  Receive Date: 20130319
  Receipt Date: 20130319
  Transmission Date: 20140127
  Serious: Yes (Other)
  Sender: FDA-Public Use
  Company Number: US-PFIZER INC-2013081084

PATIENT
  Sex: Female

DRUGS (1)
  1. ROBITUSSIN COUGH AND COLD CF [Suspect]
     Dosage: UNK

REACTIONS (2)
  - Expired drug administered [Unknown]
  - Blindness unilateral [Unknown]
